FAERS Safety Report 24022959 (Version 3)
Quarter: 2024Q2

REPORT INFORMATION
  Report Type: Report from Study
  Country: CN (occurrence: CN)
  Receive Date: 20240627
  Receipt Date: 20240628
  Transmission Date: 20240716
  Serious: No
  Sender: FDA-Public Use
  Company Number: CN-ROCHE-3425736

PATIENT
  Age: 81 Year
  Sex: Male
  Weight: 55.0 kg

DRUGS (1)
  1. ALECENSA [Suspect]
     Active Substance: ALECTINIB HYDROCHLORIDE
     Indication: Lung neoplasm malignant
     Dosage: 150 MG ,56 CAPSULES, 4 SMALL BOXES
     Route: 048
     Dates: start: 20230726

REACTIONS (2)
  - Oedema peripheral [Unknown]
  - Mouth ulceration [Unknown]
